FAERS Safety Report 22066293 (Version 1)
Quarter: 2023Q1

REPORT INFORMATION
  Report Type: Spontaneous
  Country: US (occurrence: None)
  Receive Date: 20230305
  Receipt Date: 20230305
  Transmission Date: 20230418
  Serious: Yes (Death)
  Sender: FDA-Public Use
  Company Number: None

PATIENT
  Age: 81 Year
  Sex: Male
  Weight: 90.72 kg

DRUGS (13)
  1. VOTRIENT [Suspect]
     Active Substance: PAZOPANIB HYDROCHLORIDE
     Indication: Soft tissue sarcoma
     Dosage: FREQUENCY : DAILY;?
     Route: 048
     Dates: start: 20230215
  2. AMLODIPINE [Concomitant]
  3. FINASTERIDE [Concomitant]
  4. FUROSEMIDE [Concomitant]
  5. LEVEMIR [Concomitant]
  6. LOSARTAN [Concomitant]
  7. MELATONIN [Concomitant]
  8. MELOXICAM [Concomitant]
  9. MULTIVITAMIN [Concomitant]
  10. NOVOLOG [Concomitant]
  11. POTASSIUM [Concomitant]
  12. SIMVASTATIN [Concomitant]
  13. TAMSULOSIN [Concomitant]
     Active Substance: TAMSULOSIN

REACTIONS (1)
  - Death [None]

NARRATIVE: CASE EVENT DATE: 20230215
